FAERS Safety Report 11427189 (Version 1)
Quarter: 2015Q3

REPORT INFORMATION
  Report Type: Spontaneous
  Country: US (occurrence: US)
  Receive Date: 20150827
  Receipt Date: 20150827
  Transmission Date: 20151125
  Serious: No
  Sender: FDA-Public Use
  Company Number: US-BAUSCH-BL-2014-007612

PATIENT
  Age: 83 Year
  Sex: Female
  Weight: 68.1 kg

DRUGS (2)
  1. DORZOLAMIDE HCL AND TIMOLOL MALEATE [Suspect]
     Active Substance: DORZOLAMIDE HYDROCHLORIDE\TIMOLOL MALEATE
     Indication: GLAUCOMA
     Dosage: 1 DROP IN EACH EYE
     Route: 047
  2. GABAPENTIN. [Concomitant]
     Active Substance: GABAPENTIN
     Indication: PRODUCT USED FOR UNKNOWN INDICATION

REACTIONS (1)
  - Ocular discomfort [Recovered/Resolved]

NARRATIVE: CASE EVENT DATE: 20141004
